FAERS Safety Report 9784060 (Version 1)
Quarter: 2013Q4

REPORT INFORMATION
  Report Type: Spontaneous
  Country: US (occurrence: US)
  Receive Date: 20131226
  Receipt Date: 20131226
  Transmission Date: 20140711
  Serious: No
  Sender: FDA-Public Use
  Company Number: US-009507513-1312USA008182

PATIENT
  Sex: Female

DRUGS (4)
  1. JANUMET [Suspect]
     Route: 048
  2. LEVEMIR [Concomitant]
  3. INSULATARD FLEXPEN [Concomitant]
  4. METFORMIN [Concomitant]

REACTIONS (5)
  - Eating disorder [Unknown]
  - Feeling hot [Unknown]
  - Decreased appetite [Unknown]
  - Malaise [Unknown]
  - Nausea [Unknown]
